FAERS Safety Report 5464064-9 (Version None)
Quarter: 2007Q3

REPORT INFORMATION
  Report Type: 
  Country: None (occurrence: None)
  Receive Date: 20070921
  Receipt Date: 20070917
  Transmission Date: 20080115
  Serious: Yes (Life-Threatening)
  Sender: FDA-Public Use
  Company Number: FR-ASTRAZENECA-2007CG01312

PATIENT
  Age: 17584 Day
  Sex: Female

DRUGS (6)
  1. DIPRIVAN [Suspect]
     Indication: ANAESTHESIA
     Route: 042
     Dates: start: 20061212, end: 20061212
  2. HYPNOVEL [Suspect]
     Indication: PREMEDICATION
     Route: 042
     Dates: start: 20061212, end: 20061212
  3. HYPNOVEL [Suspect]
     Indication: ANAESTHESIA
     Route: 042
     Dates: start: 20061212, end: 20061212
  4. CELOCURIN [Suspect]
     Indication: ANAESTHESIA
     Route: 042
     Dates: start: 20061212, end: 20061212
  5. SUFENTANIL CITRATE [Suspect]
     Indication: ANAESTHESIA
     Route: 042
     Dates: start: 20061212, end: 20061212
  6. TRACRIUM [Suspect]
     Indication: ANAESTHESIA
     Route: 042
     Dates: start: 20061212, end: 20061212

REACTIONS (7)
  - BRONCHOSPASM [None]
  - CYANOSIS [None]
  - FACE OEDEMA [None]
  - GENERALISED ERYTHEMA [None]
  - OEDEMA MUCOSAL [None]
  - SHOCK [None]
  - URTICARIA [None]
